FAERS Safety Report 6005613-1 (Version None)
Quarter: 2008Q4

REPORT INFORMATION
  Report Type: 
  Country: None (occurrence: None)
  Receive Date: 20081205
  Receipt Date: 20081124
  Transmission Date: 20090506
  Serious: Yes (Other)
  Sender: FDA-Public Use
  Company Number: THYM-1000844

PATIENT

DRUGS (1)
  1. THYMOGLOBULIN [Suspect]
     Indication: DRUG USE FOR UNKNOWN INDICATION
     Dosage: DRUG FOR UNREPORTED  INDICATION (NOT CODED)

REACTIONS (2)
  - CEREBRAL HAEMORRHAGE [None]
  - HEADACHE [None]
